FAERS Safety Report 15344123 (Version 1)
Quarter: 2018Q3

REPORT INFORMATION
  Report Type: Spontaneous
  Country: TW (occurrence: TW)
  Receive Date: 20180903
  Receipt Date: 20180903
  Transmission Date: 20181010
  Serious: Yes (Hospitalization)
  Sender: FDA-Public Use
  Company Number: TW-BAUSCH-BL-2018-024277

PATIENT
  Age: 58 Year
  Sex: Female

DRUGS (3)
  1. EUGLUCON [Suspect]
     Active Substance: GLYBURIDE
     Indication: SUICIDE ATTEMPT
     Dosage: 20 TABLETS
     Route: 065
  2. METFORMIN [Suspect]
     Active Substance: METFORMIN HYDROCHLORIDE
     Indication: SUICIDE ATTEMPT
     Dosage: 110 TABLETS
     Route: 065
  3. GLUCOBAY [Suspect]
     Active Substance: ACARBOSE
     Indication: SUICIDE ATTEMPT
     Dosage: 62 TABLETS
     Route: 065

REACTIONS (3)
  - Intentional overdose [Unknown]
  - Toxicity to various agents [Recovered/Resolved]
  - Lactic acidosis [Recovered/Resolved]
